FAERS Safety Report 8245917-5 (Version None)
Quarter: 2012Q1

REPORT INFORMATION
  Report Type: 
  Country: None (occurrence: None)
  Receive Date: 20120328
  Receipt Date: 20120328
  Transmission Date: 20120608
  Serious: Yes (Hospitalization)
  Sender: FDA-Public Use
  Company Number: None

PATIENT
  Sex: Female
  Weight: 84.3 kg

DRUGS (36)
  1. ACETAMINOPHEN [Concomitant]
  2. PROTONIX [Concomitant]
  3. DAUNORUBICIN HCL [Suspect]
     Dosage: 96 MG
  4. METHYLPREDNISOLONE [Suspect]
     Dosage: 1320 MG
  5. VINCRISTINE SULFATE [Suspect]
     Dosage: 2 MG
  6. ALTEPLASE [Concomitant]
  7. BACTRIM [Concomitant]
  8. DOCUSATE SODIUM [Concomitant]
  9. MAGNESIUM SULFATE [Concomitant]
  10. ZOFRAN [Concomitant]
  11. ACYCLOVIR [Concomitant]
  12. MORPHINE [Concomitant]
  13. INSULIN/ LISPRO [Concomitant]
  14. LORAZEPAM [Concomitant]
  15. ODANESETRON [Concomitant]
  16. SCOPALAMINE [Concomitant]
  17. BIOTENE MOUTH RINSE [Concomitant]
  18. LANTUS [Concomitant]
  19. LOMOTIL [Concomitant]
  20. CYTARABINE [Suspect]
     Dosage: 70 MG
  21. METHOTREXATE [Suspect]
     Dosage: 15 MG
  22. PEG-L-ASPARAGINASE (K-H) [Suspect]
     Dosage: 48000 UNIT
  23. ALLOPURINOL [Concomitant]
  24. CEFAZOLIN [Concomitant]
  25. DIPHENHYDRAMINE HCL [Concomitant]
  26. MICAFUNGIN [Concomitant]
  27. CEFTAZIDIME [Concomitant]
  28. VICODIN [Concomitant]
  29. ZOLPIDEM [Concomitant]
  30. CLOTRIMAZOLE [Concomitant]
  31. DEXTROSE [Concomitant]
  32. INSULIN/GLARGINE [Concomitant]
  33. MEDROXYPROGESTERONE [Concomitant]
  34. NYSTATIN [Concomitant]
  35. POTASSIUM CHLORIDE [Concomitant]
  36. SODIUM CHLORIDE [Concomitant]

REACTIONS (2)
  - PLATELET COUNT DECREASED [None]
  - HYPERGLYCAEMIA [None]
